FAERS Safety Report 12421772 (Version 2)
Quarter: 2016Q2

REPORT INFORMATION
  Report Type: Spontaneous
  Country: US (occurrence: US)
  Receive Date: 20160531
  Receipt Date: 20160617
  Transmission Date: 20160815
  Serious: Yes (Hospitalization, Other)
  Sender: FDA-Public Use
  Company Number: US-PFIZER INC-2016276660

PATIENT
  Age: 64 Year
  Sex: Female

DRUGS (11)
  1. VENLAFAXINE [Concomitant]
     Active Substance: VENLAFAXINE HYDROCHLORIDE
     Dosage: UNK
     Dates: start: 2000
  2. PROPRANOLOL [Concomitant]
     Active Substance: PROPRANOLOL\PROPRANOLOL HYDROCHLORIDE
     Dosage: UNK
     Dates: start: 2014
  3. NEURONTIN [Suspect]
     Active Substance: GABAPENTIN
     Indication: DEPRESSION
     Dosage: 100 MG, 3X/DAY
  4. BUSPIRONE [Concomitant]
     Active Substance: BUSPIRONE HYDROCHLORIDE
     Dosage: UNK
     Dates: start: 2000
  5. NEURONTIN [Suspect]
     Active Substance: GABAPENTIN
     Indication: SPINAL OPERATION
     Dosage: 100 MG, 3X/DAY
  6. NEURONTIN [Suspect]
     Active Substance: GABAPENTIN
     Indication: BACK PAIN
  7. HYDROCHLOROTHIAZIDE. [Concomitant]
     Active Substance: HYDROCHLOROTHIAZIDE
     Dosage: UNK
     Dates: start: 2000
  8. NEURONTIN [Suspect]
     Active Substance: GABAPENTIN
     Indication: BIPOLAR DISORDER
     Dosage: 200 MG, 3X/DAY
  9. CLONAZEPAM. [Concomitant]
     Active Substance: CLONAZEPAM
     Dosage: UNK
     Dates: start: 1986
  10. TRAZODONE [Concomitant]
     Active Substance: TRAZODONE HYDROCHLORIDE
     Dosage: UNK
     Dates: start: 2000
  11. OXYCONTIN [Concomitant]
     Active Substance: OXYCODONE HYDROCHLORIDE
     Dosage: UNK
     Dates: start: 2000

REACTIONS (15)
  - Memory impairment [Recovered/Resolved]
  - Headache [Recovering/Resolving]
  - Blister [Not Recovered/Not Resolved]
  - Joint swelling [Recovered/Resolved]
  - Anger [Recovering/Resolving]
  - Concussion [Unknown]
  - Essential tremor [Unknown]
  - Drug ineffective for unapproved indication [Not Recovered/Not Resolved]
  - Nausea [Recovered/Resolved]
  - Somnolence [Unknown]
  - Suicidal behaviour [Recovering/Resolving]
  - Irritability [Recovering/Resolving]
  - Condition aggravated [Unknown]
  - Condition aggravated [Recovered/Resolved]
  - Fatigue [Unknown]

NARRATIVE: CASE EVENT DATE: 201506
